FAERS Safety Report 21690474 (Version 9)
Quarter: 2023Q4

REPORT INFORMATION
  Report Type: Spontaneous
  Country: US (occurrence: US)
  Receive Date: 20221206
  Receipt Date: 20231101
  Transmission Date: 20240110
  Serious: Yes (Life-Threatening, Other)
  Sender: FDA-Public Use
  Company Number: US-BRISTOL-MYERS SQUIBB COMPANY-2022-147895

PATIENT
  Age: 76 Year
  Sex: Female

DRUGS (5)
  1. REVLIMID [Suspect]
     Active Substance: LENALIDOMIDE
     Indication: Diffuse large B-cell lymphoma
     Dosage: TAKE 1 CAPSULE BY MOUTH EVERY MORNING
     Route: 048
  2. REVLIMID [Suspect]
     Active Substance: LENALIDOMIDE
     Dosage: TAKE 1 CAPSULE BY MOUTH EVERY MORNING
     Route: 048
  3. REVLIMID [Suspect]
     Active Substance: LENALIDOMIDE
     Dosage: TAKE 1 CAPSULE BY MOUTH EVERY DAY
     Route: 048
     Dates: start: 20220202, end: 2023
  4. REVLIMID [Suspect]
     Active Substance: LENALIDOMIDE
     Dosage: 21 DAYS
     Route: 048
     Dates: end: 20230823
  5. REVLIMID [Suspect]
     Active Substance: LENALIDOMIDE
     Route: 048
     Dates: start: 20231005, end: 20231012

REACTIONS (5)
  - Eye disorder [Unknown]
  - Off label use [Unknown]
  - White blood cell count decreased [Recovered/Resolved]
  - Muscle spasms [Not Recovered/Not Resolved]
  - Urinary tract infection [Recovered/Resolved]

NARRATIVE: CASE EVENT DATE: 20230907
